FAERS Safety Report 9845200 (Version 4)
Quarter: 2014Q3

REPORT INFORMATION
  Report Type: Spontaneous
  Country: JP (occurrence: None)
  Receive Date: 20140122
  Receipt Date: 20140707
  Transmission Date: 20150326
  Serious: Yes (Hospitalization, Disabling)
  Sender: FDA-Public Use
  Company Number: ABR_01388_2014

PATIENT
  Age: 74 Year
  Sex: Male
  Weight: 71.2 kg

DRUGS (2)
  1. GLIADEL [Suspect]
     Active Substance: CARMUSTINE
     Indication: MALIGNANT GLIOMA
     Dosage: 61.6 MG (8 DF 1X INTRACEREBRAL)
     Dates: start: 20131224
  2. ALABEL - AMINOLEVULINIC ACID HYDROCHLORIDE [Concomitant]

REACTIONS (3)
  - Infarction [None]
  - Implant site reaction [None]
  - Cerebral infarction [None]

NARRATIVE: CASE EVENT DATE: 20140107
